FAERS Safety Report 8960634 (Version 1)
Quarter: 2012Q4

REPORT INFORMATION
  Report Type: Spontaneous
  Country: KR (occurrence: None)
  Receive Date: 20121130
  Receipt Date: 20121130
  Transmission Date: 20130627
  Serious: Yes (Other)
  Sender: FDA-Public Use
  Company Number: AG-2012-1865

PATIENT

DRUGS (3)
  1. MELPHALAN (MELPHALAN) [Suspect]
     Indication: AUTOLOGOUS PERIPHERAL HEMATOPOIETIC STEM CELL TRANSPLANT
     Dosage: (140 mg/m2, Day -2)
  2. BUSULPHAN [Suspect]
     Indication: AUTOLOGOUS PERIPHERAL HEMATOPOIETIC STEM CELL TRANSPLANT
     Dosage: (3.2 mg/kg, days -5 to -3)
     Route: 042
  3. BORTEZOMIB [Suspect]
     Indication: AUTOLOGOUS PERIPHERAL HEMATOPOIETIC STEM CELL TRANSPLANT

REACTIONS (1)
  - Stomatitis [None]
